FAERS Safety Report 8990518 (Version 1)
Quarter: 2012Q4

REPORT INFORMATION
  Report Type: 
  Country: JP (occurrence: JP)
  Receive Date: 20121228
  Receipt Date: 20121228
  Transmission Date: 20130627
  Serious: Yes (Hospitalization)
  Sender: FDA-Public Use
  Company Number: JP-B.I. PHARMACEUTICALS,INC./RIDGEFIELD-2012-BI-03980NB

PATIENT
  Age: 71 Year
  Sex: Male

DRUGS (2)
  1. PRAZAXA [Suspect]
     Dosage: 220 mg
     Route: 048
     Dates: end: 20120730
  2. FAMOTIDINE [Concomitant]
     Route: 065

REACTIONS (2)
  - Thrombotic cerebral infarction [Unknown]
  - Dysphagia [Unknown]
